FAERS Safety Report 20160762 (Version 2)
Quarter: 2021Q4

REPORT INFORMATION
  Report Type: Spontaneous
  Country: US (occurrence: None)
  Receive Date: 20211208
  Receipt Date: 20211215
  Transmission Date: 20220303
  Serious: No
  Sender: FDA-Public Use
  Company Number: 2021A807295

PATIENT
  Sex: Female
  Weight: 91.2 kg

DRUGS (15)
  1. FASENRA [Suspect]
     Active Substance: BENRALIZUMAB
     Indication: Asthma
     Route: 058
  2. ALBUTEROL [Concomitant]
     Active Substance: ALBUTEROL
  3. ALPRAZOLAM [Concomitant]
     Active Substance: ALPRAZOLAM
  4. AMLODIPINE [Concomitant]
     Active Substance: AMLODIPINE BESYLATE
  5. BREO ELLIPTA [Concomitant]
     Active Substance: FLUTICASONE FUROATE\VILANTEROL TRIFENATATE
  6. ASPIRIN [Concomitant]
     Active Substance: ASPIRIN
  7. ATORVASTATIN [Concomitant]
     Active Substance: ATORVASTATIN
  8. CELEBREX [Concomitant]
     Active Substance: CELECOXIB
  9. GABAPENTIN [Concomitant]
     Active Substance: GABAPENTIN
  10. ALBUTEROL\IPRATROPIUM BROMIDE [Concomitant]
     Active Substance: ALBUTEROL\IPRATROPIUM BROMIDE
  11. POTASSIUM [Concomitant]
     Active Substance: POTASSIUM
  12. LATANOPROST [Concomitant]
     Active Substance: LATANOPROST
  13. METAXALONE [Concomitant]
     Active Substance: METAXALONE
  14. METOPROLOL [Concomitant]
     Active Substance: METOPROLOL
  15. SINGULAR OMEPRAZOLE [Concomitant]

REACTIONS (3)
  - Productive cough [Unknown]
  - Product dose omission issue [Unknown]
  - Manufacturing product shipping issue [Unknown]
